FAERS Safety Report 13654238 (Version 1)
Quarter: 2017Q2

REPORT INFORMATION
  Report Type: Spontaneous
  Country: ID (occurrence: ID)
  Receive Date: 20170614
  Receipt Date: 20170614
  Transmission Date: 20170830
  Serious: Yes (Other)
  Sender: FDA-Public Use
  Company Number: PHHY2017ID083361

PATIENT
  Age: 2 Year
  Sex: Male

DRUGS (8)
  1. CEFTAZIDIME. [Suspect]
     Active Substance: CEFTAZIDIME
     Indication: ACANTHAMOEBA INFECTION
     Route: 042
  2. METRONIDAZOLE. [Suspect]
     Active Substance: METRONIDAZOLE
     Indication: PSEUDOMONAS TEST POSITIVE
  3. CEFTAZIDIME. [Suspect]
     Active Substance: CEFTAZIDIME
     Indication: PSEUDOMONAS TEST POSITIVE
  4. METRONIDAZOLE. [Suspect]
     Active Substance: METRONIDAZOLE
     Indication: ACANTHAMOEBA INFECTION
     Route: 042
  5. FLUCONAZOLE. [Suspect]
     Active Substance: FLUCONAZOLE
     Indication: ACANTHAMOEBA INFECTION
     Route: 042
  6. FLUCONAZOLE. [Suspect]
     Active Substance: FLUCONAZOLE
     Indication: PSEUDOMONAS TEST POSITIVE
  7. RIFAMPICIN [Suspect]
     Active Substance: RIFAMPIN
     Indication: PSEUDOMONAS TEST POSITIVE
  8. RIFAMPICIN [Suspect]
     Active Substance: RIFAMPIN
     Indication: ACANTHAMOEBA INFECTION
     Route: 048

REACTIONS (1)
  - Mental status changes [Unknown]
